FAERS Safety Report 16386915 (Version 2)
Quarter: 2019Q2

REPORT INFORMATION
  Report Type: Spontaneous
  Country: IE (occurrence: IE)
  Receive Date: 20190604
  Receipt Date: 20190611
  Transmission Date: 20190711
  Serious: Yes (Death)
  Sender: FDA-Public Use
  Company Number: IE-CELLTRION INC.-2019IE021626

PATIENT

DRUGS (2)
  1. INFLIXIMAB PFIZER (UNKNOWN) [Suspect]
     Active Substance: INFLIXIMAB
     Dosage: UNK
     Route: 064
  2. BCG VACCINE [Suspect]
     Active Substance: BCG VACCINE
     Dosage: UNK

REACTIONS (2)
  - Disseminated tuberculosis [Fatal]
  - Maternal exposure during pregnancy [Fatal]
